FAERS Safety Report 10711273 (Version 2)
Quarter: 2015Q2

REPORT INFORMATION
  Report Type: Spontaneous
  Country: US (occurrence: US)
  Receive Date: 20150114
  Receipt Date: 20150407
  Transmission Date: 20150821
  Serious: No
  Sender: FDA-Public Use
  Company Number: US-LUNDBECK-DKLU1106931

PATIENT
  Sex: Female

DRUGS (4)
  1. NORTHERA [Suspect]
     Active Substance: DROXIDOPA
     Indication: PALPITATIONS
  2. NORTHERA [Suspect]
     Active Substance: DROXIDOPA
     Indication: HYPERHIDROSIS
     Route: 048
     Dates: start: 20141211
  3. NORTHERA [Suspect]
     Active Substance: DROXIDOPA
     Indication: BLOOD PRESSURE FLUCTUATION
  4. NORTHERA [Suspect]
     Active Substance: DROXIDOPA
     Indication: FLUSHING
     Route: 048
     Dates: start: 201503

REACTIONS (1)
  - Headache [Unknown]
